FAERS Safety Report 5631787-8 (Version None)
Quarter: 2008Q1

REPORT INFORMATION
  Report Type: 
  Country: None (occurrence: None)
  Receive Date: 20080220
  Receipt Date: 20080213
  Transmission Date: 20080703
  Serious: Yes (Hospitalization, Other)
  Sender: FDA-Public Use
  Company Number: PHNR2008AU00480

PATIENT
  Age: 30 Year
  Sex: Female

DRUGS (1)
  1. SYNTOCINON [Suspect]
     Indication: THIRD STAGE POSTPARTUM HAEMORRHAGE
     Dosage: 10 IU, UNK
     Route: 030
     Dates: start: 20080109

REACTIONS (2)
  - HAEMOGLOBIN DECREASED [None]
  - POSTPARTUM HAEMORRHAGE [None]
